FAERS Safety Report 12261668 (Version 1)
Quarter: 2016Q2

REPORT INFORMATION
  Report Type: Spontaneous
  Country: BR (occurrence: BR)
  Receive Date: 20160413
  Receipt Date: 20160413
  Transmission Date: 20160815
  Serious: Yes (Other)
  Sender: FDA-Public Use
  Company Number: BR-AMGEN-BRASP2016044575

PATIENT
  Age: 56 Year
  Sex: Female
  Weight: 90 kg

DRUGS (6)
  1. NIMESULIDE [Concomitant]
     Active Substance: NIMESULIDE
     Dosage: 1 TABLET OF 20 MG, DAILY
  2. PURAN [Concomitant]
     Active Substance: LEVOTHYROXINE SODIUM
     Dosage: 1 TABLET OF 125 MG, DAILY, IN FASTING
  3. CLONAZEPAM. [Concomitant]
     Active Substance: CLONAZEPAM
     Dosage: 1 TABLET OF 5 MG, DAILY
  4. ENBREL [Suspect]
     Active Substance: ETANERCEPT
     Indication: RHEUMATOID ARTHRITIS
     Dosage: 50 MG, 1X/WEEK
     Route: 058
     Dates: start: 20120906
  5. FLUOXETINE [Concomitant]
     Active Substance: FLUOXETINE HYDROCHLORIDE
     Dosage: 3 TABLETS OF 20 MG, DAILY
  6. PARACETAMOL [Concomitant]
     Active Substance: ACETAMINOPHEN
     Indication: PAIN
     Dosage: 700 MG, EVERY 8 HOURS IF PAIN

REACTIONS (6)
  - Wound [Unknown]
  - Peripheral swelling [Not Recovered/Not Resolved]
  - Pruritus generalised [Unknown]
  - Visual acuity reduced [Unknown]
  - Hypersensitivity [Not Recovered/Not Resolved]
  - Cataract [Unknown]

NARRATIVE: CASE EVENT DATE: 2014
